FAERS Safety Report 12607777 (Version 1)
Quarter: 2016Q3

REPORT INFORMATION
  Report Type: Spontaneous
  Country: US (occurrence: US)
  Receive Date: 20160729
  Receipt Date: 20160729
  Transmission Date: 20161109
  Serious: Yes (Other)
  Sender: FDA-Public Use
  Company Number: US-BEH-2016071574

PATIENT
  Age: 73 Year
  Sex: Male
  Weight: 77.98 kg

DRUGS (25)
  1. ASPIRIN. [Concomitant]
     Active Substance: ASPIRIN
  2. HIZENTRA [Suspect]
     Active Substance: HUMAN IMMUNOGLOBULIN G
     Dosage: 10 G, QW
     Route: 058
  3. CELEBREX [Concomitant]
     Active Substance: CELECOXIB
  4. XANAX [Concomitant]
     Active Substance: ALPRAZOLAM
  5. IBUPROFEN. [Concomitant]
     Active Substance: IBUPROFEN
  6. FLONASE [Concomitant]
     Active Substance: FLUTICASONE PROPIONATE
  7. FINASTERIDE. [Concomitant]
     Active Substance: FINASTERIDE
  8. EPIPEN [Concomitant]
     Active Substance: EPINEPHRINE
  9. LOSARTAN HYDROCHLOROTHIAZIDE ACTAVIS [Concomitant]
  10. LYSINE [Concomitant]
     Active Substance: LYSINE
  11. SODIUM CHLORIDE. [Concomitant]
     Active Substance: SODIUM CHLORIDE
  12. DIPHENHYDRAMINE. [Concomitant]
     Active Substance: DIPHENHYDRAMINE
  13. HIZENTRA [Suspect]
     Active Substance: HUMAN IMMUNOGLOBULIN G
     Indication: IMMUNODEFICIENCY COMMON VARIABLE
     Dosage: 10 G, UNK
     Route: 058
     Dates: start: 20101103
  14. DEXILANT [Concomitant]
     Active Substance: DEXLANSOPRAZOLE
  15. TAMSULOSIN [Concomitant]
     Active Substance: TAMSULOSIN
  16. VITAMINS WITH MINERALS [Concomitant]
     Active Substance: MINERALS\VITAMINS
  17. DOXYCYCLINE HYCLATE. [Concomitant]
     Active Substance: DOXYCYCLINE HYCLATE
  18. LEVEMIR [Concomitant]
     Active Substance: INSULIN DETEMIR
  19. CALCIUM CARBONATE. [Concomitant]
     Active Substance: CALCIUM CARBONATE
  20. TYLENOL EXTRA STRENGTH [Concomitant]
     Active Substance: ACETAMINOPHEN
  21. FUROSEMIDE. [Concomitant]
     Active Substance: FUROSEMIDE
  22. APIDRA SOLOSTAR [Concomitant]
     Active Substance: INSULIN GLULISINE
  23. FISH OIL W/VITAMIN D NOS [Concomitant]
  24. COREG [Concomitant]
     Active Substance: CARVEDILOL
  25. BACTROBAN [Concomitant]
     Active Substance: MUPIROCIN\MUPIROCIN CALCIUM

REACTIONS (1)
  - Cardiac failure congestive [Unknown]

NARRATIVE: CASE EVENT DATE: 20160718
